FAERS Safety Report 9087730 (Version 1)
Quarter: 2013Q1

REPORT INFORMATION
  Report Type: Spontaneous
  Country: US (occurrence: US)
  Receive Date: 20130131
  Receipt Date: 20130131
  Transmission Date: 20140127
  Serious: Yes (Death, Hospitalization, Other)
  Sender: FDA-Public Use
  Company Number: US-PFIZER INC-2013033756

PATIENT
  Age: 96 Year
  Sex: Female
  Weight: 61.22 kg

DRUGS (6)
  1. REVATIO [Suspect]
     Indication: PULMONARY HYPERTENSION
     Dosage: 20 MG, 3X/DAY
     Route: 048
     Dates: start: 201111
  2. LISINOPRIL [Suspect]
     Indication: DIURETIC THERAPY
     Dosage: 20 MG, UNK
  3. LASIX [Suspect]
     Indication: DIURETIC THERAPY
     Dosage: 20 MG, DAILY
     Dates: start: 200706, end: 2011
  4. LASIX [Suspect]
     Dosage: (40 MG IN THE MORNING AND 20 MG AT NIGHT), 2X/DAY
     Dates: start: 2011
  5. COUMADIN [Suspect]
     Dosage: 5 MG, DAILY
  6. ASPIRIN [Suspect]
     Dosage: 81 MG, DAILY

REACTIONS (9)
  - Pulmonary hypertension [Fatal]
  - Renal failure [Fatal]
  - Right ventricular failure [Fatal]
  - Renal disorder [Not Recovered/Not Resolved]
  - Renal failure chronic [Not Recovered/Not Resolved]
  - Renal function test abnormal [Unknown]
  - Haemorrhage [Unknown]
  - Urinary tract infection [Not Recovered/Not Resolved]
  - Anaemia [Not Recovered/Not Resolved]
